FAERS Safety Report 8829042 (Version 3)
Quarter: 2014Q2

REPORT INFORMATION
  Report Type: Report from Study
  Country: BG (occurrence: BG)
  Receive Date: 20121008
  Receipt Date: 20140609
  Transmission Date: 20141212
  Serious: Yes (Hospitalization)
  Sender: FDA-Public Use
  Company Number: BG-ROCHE-1138487

PATIENT
  Age: 47 Year
  Sex: Female
  Weight: 83 kg

DRUGS (11)
  1. PEG-INTERFERON ALFA 2A [Suspect]
     Indication: CHRONIC HEPATITIS C
     Route: 058
     Dates: start: 20120813
  2. PEG-INTERFERON ALFA 2A [Suspect]
     Route: 058
     Dates: start: 20120820
  3. PEG-INTERFERON ALFA 2A [Suspect]
     Route: 058
     Dates: start: 20120827
  4. PEG-INTERFERON ALFA 2A [Suspect]
     Route: 058
     Dates: start: 20120903
  5. PEG-INTERFERON ALFA 2A [Suspect]
     Route: 058
     Dates: start: 20120910
  6. RIBAVIRIN [Suspect]
     Indication: CHRONIC HEPATITIS C
     Dosage: DOSE:2+2/24HOURS
     Route: 048
     Dates: start: 20120813, end: 20120912
  7. RIBAVIRIN [Suspect]
     Route: 065
     Dates: start: 20120925
  8. TELAPREVIR [Suspect]
     Indication: CHRONIC HEPATITIS C
     Dosage: 2 TABLETS 3 TIMES DAILY
     Route: 048
     Dates: start: 20120813
  9. TELAPREVIR [Suspect]
     Dosage: 2 TABLETS 3 TIMES DAILY
     Route: 048
     Dates: start: 20120910
  10. TMC435 [Suspect]
     Indication: CHRONIC HEPATITIS C
     Route: 048
     Dates: start: 20120813
  11. TMC435 [Suspect]
     Route: 048
     Dates: start: 20120910

REACTIONS (2)
  - Anaemia [Recovered/Resolved]
  - Transfusion [Recovered/Resolved]
